FAERS Safety Report 21342008 (Version 1)
Quarter: 2022Q3

REPORT INFORMATION
  Report Type: Spontaneous
  Country: US (occurrence: None)
  Receive Date: 20220915
  Receipt Date: 20220915
  Transmission Date: 20221027
  Serious: No
  Sender: FDA-Public Use
  Company Number: None

PATIENT
  Sex: Male

DRUGS (1)
  1. ABIRATERONE [Suspect]
     Active Substance: ABIRATERONE
     Dosage: FREQUENCY : DAILY;?
     Route: 048

REACTIONS (10)
  - Rash [None]
  - Dysphagia [None]
  - Back pain [None]
  - Arthralgia [None]
  - Pelvic pain [None]
  - Exercise tolerance decreased [None]
  - Grip strength decreased [None]
  - Balance disorder [None]
  - Fatigue [None]
  - Fatigue [None]
